FAERS Safety Report 21612243 (Version 3)
Quarter: 2023Q1

REPORT INFORMATION
  Report Type: Report from Study
  Country: US (occurrence: US)
  Receive Date: 20221118
  Receipt Date: 20230110
  Transmission Date: 20230418
  Serious: Yes (Other)
  Sender: FDA-Public Use
  Company Number: US-ABBVIE-22K-163-4504409-00

PATIENT
  Age: 50 Year
  Sex: Male

DRUGS (2)
  1. IMBRUVICA [Suspect]
     Active Substance: IBRUTINIB
     Indication: Chronic lymphocytic leukaemia
     Route: 048
     Dates: start: 20190801
  2. IMBRUVICA [Suspect]
     Active Substance: IBRUTINIB
     Indication: Chronic lymphocytic leukaemia
     Dosage: DOSE REDUCED
     Route: 048
     Dates: start: 20220801

REACTIONS (10)
  - Internal haemorrhage [Recovering/Resolving]
  - Hypertension [Not Recovered/Not Resolved]
  - Illness [Recovering/Resolving]
  - Blood pressure abnormal [Not Recovered/Not Resolved]
  - Skin disorder [Not Recovered/Not Resolved]
  - Vascular rupture [Recovering/Resolving]
  - Contusion [Not Recovered/Not Resolved]
  - Nausea [Recovering/Resolving]
  - Asthenia [Recovering/Resolving]
  - Urticaria [Recovering/Resolving]

NARRATIVE: CASE EVENT DATE: 20221205
